FAERS Safety Report 21951749 (Version 2)
Quarter: 2023Q1

REPORT INFORMATION
  Report Type: Spontaneous
  Country: ES (occurrence: ES)
  Receive Date: 20230203
  Receipt Date: 20230206
  Transmission Date: 20230417
  Serious: Yes (Death, Hospitalization, Other)
  Sender: FDA-Public Use
  Company Number: ES-ASTELLAS-2023US001897

PATIENT
  Age: 66 Year
  Sex: Male

DRUGS (3)
  1. TACROLIMUS [Suspect]
     Active Substance: TACROLIMUS
     Indication: Renal transplant
     Dosage: 1 DOSAGE FORM, QD (ONCE DAILY (DOSE VARIABLE ACCORDING TO LEVELS)  )
     Route: 048
     Dates: start: 202110, end: 202211
  2. BASILIXIMAB [Concomitant]
     Active Substance: BASILIXIMAB
     Indication: Product used for unknown indication
     Dosage: UNK
     Route: 065
  3. MYCOPHENOLIC ACID [Concomitant]
     Active Substance: MYCOPHENOLIC ACID
     Indication: Product used for unknown indication
     Dosage: AMF (MYCOPHENOLIC ACID)
     Route: 065

REACTIONS (9)
  - Death [Fatal]
  - Pneumonia [Recovered/Resolved]
  - Musculoskeletal pain [Not Recovered/Not Resolved]
  - Sepsis [Unknown]
  - Neoplasm progression [Unknown]
  - Arteriovenous fistula [Unknown]
  - Oedema peripheral [Not Recovered/Not Resolved]
  - Aphonia [Not Recovered/Not Resolved]
  - Vocal cord paralysis [Not Recovered/Not Resolved]

NARRATIVE: CASE EVENT DATE: 20211010
